FAERS Safety Report 8625973-2 (Version None)
Quarter: 2012Q3

REPORT INFORMATION
  Report Type: 
  Country: None (occurrence: None)
  Receive Date: 20120827
  Receipt Date: 20120821
  Transmission Date: 20120928
  Serious: Yes (Hospitalization)
  Sender: FDA-Public Use
  Company Number: US-BAXTER-2012BAX014214

PATIENT
  Sex: Female
  Weight: 63.64 kg

DRUGS (8)
  1. ARALAST NP [Suspect]
     Indication: ALPHA-1 ANTI-TRYPSIN DEFICIENCY
     Dosage: DOSE VARIES EACH WEEK
     Route: 042
     Dates: start: 20050101
  2. MORPHINE [Concomitant]
     Route: 048
  3. SPIRIVA [Concomitant]
  4. RESTORIL [Concomitant]
     Route: 048
  5. VALIUM [Concomitant]
     Dosage: ON TREATMENT DAYS
  6. SYMBICORT [Concomitant]
  7. PROAIR HFA [Concomitant]
  8. ATIVAN [Concomitant]
     Route: 048

REACTIONS (5)
  - DYSPNOEA [None]
  - PNEUMONIA [None]
  - PRURITUS [None]
  - SPUTUM DISCOLOURED [None]
  - CONFUSIONAL STATE [None]
